FAERS Safety Report 5905772-2 (Version None)
Quarter: 2008Q4

REPORT INFORMATION
  Report Type: 
  Country: None (occurrence: None)
  Receive Date: 20081002
  Receipt Date: 20080930
  Transmission Date: 20090506
  Serious: Yes (Other)
  Sender: FDA-Public Use
  Company Number: A0749833A

PATIENT
  Sex: Female

DRUGS (5)
  1. ADVAIR DISKUS 100/50 [Suspect]
     Indication: ASTHMA
     Dosage: 1PUFF TWICE PER DAY
     Route: 055
     Dates: end: 20080926
  2. SEREVENT [Suspect]
     Indication: ASTHMA
     Dates: start: 20080926
  3. ANTI-ANXIETY MED- NAME UNKNOWN [Concomitant]
  4. ASPIRIN [Concomitant]
  5. NITROGLYCERIN [Concomitant]

REACTIONS (2)
  - COUGH [None]
  - GLAUCOMA [None]
